FAERS Safety Report 23784011 (Version 1)
Quarter: 2024Q2

REPORT INFORMATION
  Report Type: Spontaneous
  Country: US (occurrence: US)
  Receive Date: 20240425
  Receipt Date: 20240425
  Transmission Date: 20240715
  Serious: No
  Sender: FDA-Public Use
  Company Number: US-SA-SAC20240420000456

PATIENT
  Age: 53 Year
  Sex: Female
  Weight: 60.78 kg

DRUGS (1)
  1. DUPIXENT [Suspect]
     Active Substance: DUPILUMAB
     Indication: Dermatitis
     Dosage: 300 MG, QOW
     Route: 058
     Dates: start: 20240325

REACTIONS (7)
  - Pruritus [Unknown]
  - Psoriasis [Unknown]
  - Erythema [Unknown]
  - Dry skin [Unknown]
  - Skin hypertrophy [Unknown]
  - Skin exfoliation [Unknown]
  - Product use in unapproved indication [Unknown]
